FAERS Safety Report 5171596-X (Version None)
Quarter: 2006Q4

REPORT INFORMATION
  Report Type: 
  Country: None (occurrence: None)
  Receive Date: 20061213
  Receipt Date: 20061204
  Transmission Date: 20070319
  Serious: Yes (Other)
  Sender: FDA-Public Use
  Company Number: CH-ROCHE-473888

PATIENT
  Age: 36 Year
  Sex: Male

DRUGS (6)
  1. BONIVA [Suspect]
     Indication: OSTEOPOROSIS
     Route: 042
     Dates: start: 20061019
  2. LUMINAL [Concomitant]
     Route: 048
  3. DEPAKENE [Concomitant]
     Route: 048
  4. PHENYTOIN SODIUM CAP [Concomitant]
     Route: 048
  5. TEGRETOL [Concomitant]
     Route: 048
  6. CALCIUM [Concomitant]
     Indication: OSTEOPOROSIS
     Route: 054
     Dates: start: 20051215

REACTIONS (1)
  - EPILEPSY [None]
